FAERS Safety Report 22055407 (Version 1)
Quarter: 2023Q1

REPORT INFORMATION
  Report Type: Spontaneous
  Country: US (occurrence: US)
  Receive Date: 20230302
  Receipt Date: 20230302
  Transmission Date: 20230417
  Serious: Yes (Hospitalization, Other)
  Sender: FDA-Public Use
  Company Number: US-PFIZER INC-PV202300038228

PATIENT
  Age: 82 Year
  Sex: Female
  Weight: 57.15 kg

DRUGS (6)
  1. XELJANZ [Suspect]
     Active Substance: TOFACITINIB CITRATE
     Indication: Rheumatoid arthritis
     Dosage: 33 MG, WEEKLY (EVERY 1 WEEK)
  2. METHOTREXATE SODIUM [Suspect]
     Active Substance: METHOTREXATE SODIUM
     Indication: Rheumatoid arthritis
     Dosage: 15 MG, WEEKLY (EVERY 1 WEEK)
  3. REMICADE [Suspect]
     Active Substance: INFLIXIMAB
     Indication: Rheumatoid arthritis
     Dosage: UNK
     Route: 042
  4. CALCIUM [Concomitant]
     Active Substance: CALCIUM
     Indication: Bone disorder
     Dosage: UNK
  5. FOLIC ACID [Concomitant]
     Active Substance: FOLIC ACID
     Dosage: 400 UG (EVERY 2 DAY)
  6. LEVOTHYROXINE [Concomitant]
     Active Substance: LEVOTHYROXINE
     Indication: Thyroid disorder
     Dosage: 25 UG (EVERY 1 DAY)
     Route: 048

REACTIONS (8)
  - Skin cancer [Not Recovered/Not Resolved]
  - Flushing [Not Recovered/Not Resolved]
  - Vasodilatation [Unknown]
  - Pruritus [Unknown]
  - Dry skin [Unknown]
  - Skin discolouration [Unknown]
  - Acne [Not Recovered/Not Resolved]
  - Skin disorder [Unknown]
